FAERS Safety Report 7687910-7 (Version None)
Quarter: 2011Q3

REPORT INFORMATION
  Report Type: 
  Country: None (occurrence: None)
  Receive Date: 20110816
  Receipt Date: 20110816
  Transmission Date: 20111222
  Serious: Yes (Other)
  Sender: FDA-Public Use
  Company Number: None

PATIENT
  Age: 51 Year
  Sex: Female
  Weight: 58.9676 kg

DRUGS (1)
  1. CIPROFLOXACIN [Suspect]
     Indication: URINARY TRACT INFECTION
     Dosage: 250 MG 2X DAILY
     Dates: start: 20100902, end: 20100904

REACTIONS (8)
  - ECONOMIC PROBLEM [None]
  - GAIT DISTURBANCE [None]
  - TENDON PAIN [None]
  - DISCOMFORT [None]
  - NIGHTMARE [None]
  - HYPOAESTHESIA [None]
  - ACTIVITIES OF DAILY LIVING IMPAIRED [None]
  - OEDEMA PERIPHERAL [None]
